FAERS Safety Report 7340694-4 (Version None)
Quarter: 2011Q1

REPORT INFORMATION
  Report Type: 
  Country: None (occurrence: None)
  Receive Date: 20110309
  Receipt Date: 20110225
  Transmission Date: 20110831
  Serious: Yes (Hospitalization, Other)
  Sender: FDA-Public Use
  Company Number: US-JNJFOC-20110200863

PATIENT
  Sex: Female
  Weight: 74.7 kg

DRUGS (11)
  1. DECADRON [Suspect]
     Indication: MULTIPLE MYELOMA
     Dosage: DAYS: 1, 2, 4, 5, 8, 9, 11, 12
     Route: 065
  2. POTASSIUM [Concomitant]
     Indication: ILL-DEFINED DISORDER
     Route: 065
  3. ACYCLOVIR [Concomitant]
     Indication: ILL-DEFINED DISORDER
     Route: 065
  4. COMPAZINE [Concomitant]
     Indication: ILL-DEFINED DISORDER
     Route: 065
  5. MAGNESIUM OXIDE [Concomitant]
     Indication: ILL-DEFINED DISORDER
     Route: 065
  6. DOXIL [Suspect]
     Indication: MULTIPLE MYELOMA
     Dosage: DAY 4, CYCLES 1 AND 2
     Route: 042
  7. REVLIMID [Suspect]
     Indication: MULTIPLE MYELOMA
     Dosage: DAYS 1 - 14
     Route: 065
  8. LOVENOX [Concomitant]
     Indication: ILL-DEFINED DISORDER
     Route: 065
  9. SYNTHROID [Concomitant]
     Indication: ILL-DEFINED DISORDER
     Route: 065
  10. BORTEZOMIB [Suspect]
     Indication: MULTIPLE MYELOMA
     Dosage: DAYS: 1, 4, 8, 11
     Route: 042
  11. ALLOPURINOL [Concomitant]
     Indication: ILL-DEFINED DISORDER
     Route: 065

REACTIONS (5)
  - CONSTIPATION [None]
  - CONFUSIONAL STATE [None]
  - TACHYPNOEA [None]
  - DYSPNOEA [None]
  - MENTAL STATUS CHANGES [None]
